FAERS Safety Report 8469666-3 (Version None)
Quarter: 2012Q2

REPORT INFORMATION
  Report Type: 
  Country: None (occurrence: None)
  Receive Date: 20120626
  Receipt Date: 20120618
  Transmission Date: 20120825
  Serious: Yes (Death, Hospitalization)
  Sender: FDA-Public Use
  Company Number: ES-BAYER-2012-048322

PATIENT
  Age: 71 Year
  Sex: Male
  Weight: 85 kg

DRUGS (8)
  1. ATENOLOL [Concomitant]
     Indication: CARDIAC FAILURE CONGESTIVE
     Dosage: 25 MG, BID
     Route: 048
     Dates: start: 20110301, end: 20120113
  2. ENOXAPARIN SODIUM [Interacting]
     Indication: PROPHYLAXIS
     Dosage: 80 MG, BID
     Route: 058
     Dates: start: 20120106, end: 20120114
  3. INSPRA [Concomitant]
     Indication: CARDIAC FAILURE CONGESTIVE
     Dosage: 25 MG, UNK
     Route: 048
     Dates: end: 20110102
  4. SINTROM [Concomitant]
     Indication: PROPHYLAXIS
     Dosage: UNK
     Route: 048
     Dates: start: 20111001, end: 20120102
  5. PANTOPRAZOLE [Concomitant]
     Indication: PROPHYLAXIS
     Dosage: 40 MG, QD
     Route: 048
     Dates: start: 20120105, end: 20120115
  6. TAZOBACTAM [Interacting]
     Indication: URINARY TRACT INFECTION
     Dosage: 1 DF, TID
     Route: 042
     Dates: start: 20120105, end: 20120112
  7. ASPIRIN [Suspect]
     Indication: PROPHYLAXIS
     Dosage: 100 MG, QD
     Route: 048
     Dates: start: 20110301
  8. SINTROM [Concomitant]
     Dosage: UNK
     Route: 048
     Dates: start: 20120105, end: 20120106

REACTIONS (2)
  - RETROPERITONEAL HAEMATOMA [None]
  - HYPOVOLAEMIC SHOCK [None]
